FAERS Safety Report 22048041 (Version 2)
Quarter: 2023Q1

REPORT INFORMATION
  Report Type: Spontaneous
  Country: FR (occurrence: FR)
  Receive Date: 20230301
  Receipt Date: 20230313
  Transmission Date: 20230417
  Serious: Yes (Other)
  Sender: FDA-Public Use
  Company Number: FR-PFIZER INC-PV202300031055

PATIENT
  Sex: Female

DRUGS (10)
  1. REMICADE [Suspect]
     Active Substance: INFLIXIMAB
     Indication: Crohn^s disease
     Route: 042
  2. REMICADE [Suspect]
     Active Substance: INFLIXIMAB
     Indication: Rheumatoid arthritis
  3. METHOTREXATE SODIUM [Suspect]
     Active Substance: METHOTREXATE SODIUM
     Indication: Crohn^s disease
     Dosage: UNK
     Route: 065
  4. METHOTREXATE SODIUM [Suspect]
     Active Substance: METHOTREXATE SODIUM
     Indication: Rheumatoid arthritis
  5. ATENOLOL [Concomitant]
     Active Substance: ATENOLOL
  6. IRBESARTAN [Concomitant]
     Active Substance: IRBESARTAN
  7. ALDACTONE [Concomitant]
     Active Substance: SPIRONOLACTONE
  8. OXAZEPAM [Concomitant]
     Active Substance: OXAZEPAM
  9. FOLIC ACID [Concomitant]
     Active Substance: FOLIC ACID
  10. XARELTO [Concomitant]
     Active Substance: RIVAROXABAN

REACTIONS (1)
  - Cervical dysplasia [Unknown]
